FAERS Safety Report 24166312 (Version 1)
Quarter: 2024Q3

REPORT INFORMATION
  Report Type: Spontaneous
  Country: US (occurrence: US)
  Receive Date: 20240802
  Receipt Date: 20240802
  Transmission Date: 20241017
  Serious: Yes (Life-Threatening, Hospitalization, Other)
  Sender: AUROBINDO
  Company Number: US-MLMSERVICE-20240715-PI133342-00149-1

PATIENT
  Age: 22 Day
  Sex: Male
  Weight: 3.65 kg

DRUGS (5)
  1. FLECAINIDE [Suspect]
     Active Substance: FLECAINIDE
     Indication: Tachycardia foetal
     Dosage: 98 MILLIGRAM/SQ. METER, ONCE A DAY (98 MG/M2/DAY (10 MG) DIVIDED EVERY 12 H)
     Route: 048
  2. FLECAINIDE [Suspect]
     Active Substance: FLECAINIDE
     Dosage: 10 MILLIGRAM (TWO AND A HALF HOURS PRIOR TO THIS PRESENTATION)
     Route: 048
  3. FLECAINIDE [Suspect]
     Active Substance: FLECAINIDE
     Dosage: 8 DOSAGE FORM 1 TOTAL (CONCENTRATION (20 MG/ML) TWICE OF THAT INTENDED (10 MG/ML))
     Route: 048
  4. PROPRANOLOL [Concomitant]
     Active Substance: PROPRANOLOL HYDROCHLORIDE
     Indication: Tachycardia foetal
     Dosage: 2.4 MILLIGRAM/KILOGRAM, ONCE A DAY (DIVIDED EVERY 6 H)
     Route: 048
  5. PROPRANOLOL [Concomitant]
     Active Substance: PROPRANOLOL HYDROCHLORIDE
     Dosage: 2 MILLIGRAM, 3 TIMES A DAY
     Route: 048

REACTIONS (6)
  - Electrocardiogram QT prolonged [Recovered/Resolved]
  - Electrocardiogram QRS complex prolonged [Recovered/Resolved]
  - Electrocardiogram PR prolongation [Recovered/Resolved]
  - Accidental overdose [Recovered/Resolved]
  - Incorrect dose administered [Recovered/Resolved]
  - Toxicity to various agents [Recovered/Resolved]
